FAERS Safety Report 4596636-8 (Version None)
Quarter: 2005Q1

REPORT INFORMATION
  Report Type: 
  Country: None (occurrence: None)
  Receive Date: 20050228
  Receipt Date: 20050131
  Transmission Date: 20050727
  Serious: Yes (Hospitalization)
  Sender: FDA-Public Use
  Company Number: Q05-001

PATIENT
  Age: 50 Year
  Weight: 96 kg

DRUGS (4)
  1. SAMARIUM 153 LEXIDRONAM [Suspect]
     Indication: PROSTATE CANCER
     Dosage: 1 MCI/KG
     Dates: start: 20050127
  2. TAXOTERE [Suspect]
     Indication: PROSTATE CANCER
     Dosage: 25 MG/M2
     Dates: start: 20050127
  3. STEROIDS [Concomitant]
  4. RADIATION [Concomitant]

REACTIONS (6)
  - ASTHENIA [None]
  - FACIAL PALSY [None]
  - FAECAL INCONTINENCE [None]
  - PARAPLEGIA [None]
  - SPINAL CORD COMPRESSION [None]
  - URINARY INCONTINENCE [None]
